FAERS Safety Report 12427546 (Version 1)
Quarter: 2016Q2

REPORT INFORMATION
  Report Type: Spontaneous
  Country: JP (occurrence: JP)
  Receive Date: 20160602
  Receipt Date: 20160602
  Transmission Date: 20160815
  Serious: Yes (Other)
  Sender: FDA-Public Use
  Company Number: JP-ROCHE-1767534

PATIENT
  Age: 81 Year
  Sex: Female

DRUGS (8)
  1. LUCENTIS [Suspect]
     Active Substance: RANIBIZUMAB
     Dosage: 0.05 ML, PRN
     Route: 050
  2. EYLEA [Concomitant]
     Active Substance: AFLIBERCEPT
     Dosage: 0.05 ML, QMO
     Route: 031
  3. EYLEA [Concomitant]
     Active Substance: AFLIBERCEPT
     Dosage: 0.05 ML, QMO
     Route: 031
  4. EYLEA [Concomitant]
     Active Substance: AFLIBERCEPT
     Dosage: 0.05 ML, PRN
     Route: 031
  5. LUCENTIS [Suspect]
     Active Substance: RANIBIZUMAB
     Indication: DETACHMENT OF RETINAL PIGMENT EPITHELIUM
     Dosage: 0.05 ML, QMO
     Route: 050
  6. LUCENTIS [Suspect]
     Active Substance: RANIBIZUMAB
     Dosage: 0.05 ML, QMO
     Route: 050
  7. LUCENTIS [Suspect]
     Active Substance: RANIBIZUMAB
     Dosage: 0.05 ML, QMO
     Route: 050
  8. EYLEA [Concomitant]
     Active Substance: AFLIBERCEPT
     Indication: DETACHMENT OF RETINAL PIGMENT EPITHELIUM
     Dosage: 0.05 ML, QMO
     Route: 031

REACTIONS (5)
  - Retinal exudates [Unknown]
  - Visual acuity reduced [Unknown]
  - Retinal pigment epithelial tear [Unknown]
  - Retinal depigmentation [Unknown]
  - Retinal vascular disorder [Unknown]
